FAERS Safety Report 5289327-1 (Version None)
Quarter: 2007Q2

REPORT INFORMATION
  Report Type: 
  Country: None (occurrence: None)
  Receive Date: 20070406
  Receipt Date: 20070330
  Transmission Date: 20071010
  Serious: No
  Sender: FDA-Public Use
  Company Number: US-BAXTER-2007BH003285

PATIENT
  Age: 80 None
  Sex: Male

DRUGS (3)
  1. 5% DEXTROSE INJECTION [Suspect]
     Indication: MEDICATION DILUTION
     Route: 042
     Dates: start: 20070323, end: 20070323
  2. 5% DEXTROSE INJECTION [Suspect]
     Route: 042
     Dates: start: 20070323, end: 20070323
  3. 5% DEXTROSE INJECTION [Suspect]
     Route: 042
     Dates: start: 20070323, end: 20070323

REACTIONS (1)
  - UNRESPONSIVE TO STIMULI [None]
